FAERS Safety Report 22692643 (Version 2)
Quarter: 2024Q3

REPORT INFORMATION
  Report Type: Spontaneous
  Country: US (occurrence: US)
  Receive Date: 20230711
  Receipt Date: 20240722
  Transmission Date: 20241016
  Serious: No
  Sender: ASTELLAS
  Company Number: US-ASTELLAS-2022US029261

PATIENT
  Sex: Female
  Weight: 64.41 kg

DRUGS (3)
  1. MYRBETRIQ [Suspect]
     Active Substance: MIRABEGRON
     Indication: Hypertonic bladder
     Dosage: UNK UNK, UNKNOWN FREQ.
     Route: 065
  2. LOVASTATIN [Concomitant]
     Active Substance: LOVASTATIN
     Indication: Blood cholesterol increased
     Dosage: UNK UNK, UNKNOWN FREQ.
     Route: 065
  3. PROLIA [Concomitant]
     Active Substance: DENOSUMAB
     Indication: Osteopenia
     Dosage: UNK UNK, OTHER (TWICE A YEAR)
     Route: 065

REACTIONS (1)
  - Blood pressure increased [Unknown]
